FAERS Safety Report 18621643 (Version 2)
Quarter: 2020Q4

REPORT INFORMATION
  Report Type: Report from Study
  Country: None (occurrence: US)
  Receive Date: 20201215
  Receipt Date: 20201221
  Transmission Date: 20210114
  Serious: Yes (Other)
  Sender: FDA-Public Use
  Company Number: US-ABBVIE-20K-163-3681890-00

PATIENT
  Age: 59 Year
  Sex: Male
  Weight: 122.58 kg

DRUGS (3)
  1. GLYBURIDE. [Concomitant]
     Active Substance: GLYBURIDE
     Indication: TYPE 2 DIABETES MELLITUS
  2. SKYRIZI [Suspect]
     Active Substance: RISANKIZUMAB-RZAA
     Dosage: SECOND DOSE
     Route: 058
     Dates: start: 20201205, end: 20201205
  3. SKYRIZI [Suspect]
     Active Substance: RISANKIZUMAB-RZAA
     Indication: PSORIASIS
     Dosage: INITIAL DOSE
     Route: 058
     Dates: start: 20201102, end: 20201102

REACTIONS (5)
  - Toothache [Recovering/Resolving]
  - Sinus pain [Recovering/Resolving]
  - Intestinal polyp [Unknown]
  - Post procedural complication [Recovering/Resolving]
  - Contusion [Recovering/Resolving]

NARRATIVE: CASE EVENT DATE: 20201127
